FAERS Safety Report 17296353 (Version 13)
Quarter: 2023Q2

REPORT INFORMATION
  Report Type: Report from Study
  Country: FR (occurrence: FR)
  Receive Date: 20200122
  Receipt Date: 20230427
  Transmission Date: 20230721
  Serious: Yes (Death, Other)
  Sender: FDA-Public Use
  Company Number: FR-ABBVIE-19K-056-2927840-00

PATIENT
  Age: 56 Year
  Sex: Male
  Weight: 79 kg

DRUGS (26)
  1. VENETOCLAX [Suspect]
     Active Substance: VENETOCLAX
     Indication: Chronic lymphocytic leukaemia
     Dosage: 20 MILLIGRAM
     Route: 048
     Dates: start: 20190618, end: 20190624
  2. VENETOCLAX [Suspect]
     Active Substance: VENETOCLAX
     Indication: Chronic lymphocytic leukaemia
     Dosage: 50 MILLIGRAM
     Route: 048
     Dates: start: 20190625, end: 20190701
  3. VENETOCLAX [Suspect]
     Active Substance: VENETOCLAX
     Indication: Chronic lymphocytic leukaemia
     Dosage: 100 MILLIGRAM
     Route: 048
     Dates: start: 20190702, end: 20190708
  4. VENETOCLAX [Suspect]
     Active Substance: VENETOCLAX
     Indication: Chronic lymphocytic leukaemia
     Dosage: 200 MILLIGRAM
     Route: 048
     Dates: start: 20190709, end: 20190715
  5. VENETOCLAX [Suspect]
     Active Substance: VENETOCLAX
     Indication: Chronic lymphocytic leukaemia
     Dosage: 400 MILLIGRAM
     Route: 048
     Dates: start: 20190716, end: 20190719
  6. VENETOCLAX [Suspect]
     Active Substance: VENETOCLAX
     Indication: Chronic lymphocytic leukaemia
     Dosage: 200 MILLIGRAM
     Route: 048
     Dates: start: 20190720, end: 20190815
  7. ALLOPURINOL [Concomitant]
     Active Substance: ALLOPURINOL
     Indication: Hypouricaemia
     Dates: start: 20190617, end: 20200615
  8. BACTRIM [Concomitant]
     Active Substance: SULFAMETHOXAZOLE\TRIMETHOPRIM
     Indication: Antibiotic prophylaxis
     Dates: start: 20190826, end: 20191017
  9. BACTRIM [Concomitant]
     Active Substance: SULFAMETHOXAZOLE\TRIMETHOPRIM
     Indication: Antibiotic prophylaxis
     Dates: start: 20180817, end: 201907
  10. VALACICLOVIR EG [Concomitant]
     Indication: Antiviral prophylaxis
     Dates: start: 20180817, end: 20200615
  11. VALACYCLOVIR HYDROCHLORIDE [Concomitant]
     Active Substance: VALACYCLOVIR HYDROCHLORIDE
     Indication: Antiviral prophylaxis
     Dates: start: 20180817
  12. BISOPROLOL [Concomitant]
     Active Substance: BISOPROLOL
     Indication: Cardiac disorder
     Dates: start: 201806, end: 20200615
  13. ATORVASTATIN [Concomitant]
     Active Substance: ATORVASTATIN
     Indication: Hypercholesterolaemia
     Dates: start: 2018, end: 20200615
  14. ESOMEPRAZOLE [Concomitant]
     Active Substance: ESOMEPRAZOLE
     Indication: Hyperchlorhydria
     Dates: start: 2018, end: 20200615
  15. RAMIPRIL RPG [Concomitant]
     Indication: Hypertension
     Dates: start: 2018, end: 20200615
  16. ANDROSTANOLONE [Concomitant]
     Active Substance: ANDROSTANOLONE
     Indication: Antibiotic prophylaxis
     Dates: start: 20180817, end: 201907
  17. ANDROSTANOLONE [Concomitant]
     Active Substance: ANDROSTANOLONE
     Indication: Antibiotic prophylaxis
     Dates: start: 20190826, end: 20191017
  18. CEFIXIME ACTAVIS [Concomitant]
     Indication: Cough
     Dates: start: 20200202, end: 20200212
  19. LIPEGFILGRASTIM [Concomitant]
     Active Substance: LIPEGFILGRASTIM
     Indication: Colony stimulating factor therapy
     Dates: start: 20200219, end: 20200615
  20. NOXAFIL [Concomitant]
     Active Substance: POSACONAZOLE
     Indication: Antifungal prophylaxis
     Dates: start: 20200528, end: 20200615
  21. VFEND [Concomitant]
     Active Substance: VORICONAZOLE
     Indication: Pneumonia viral
     Dates: start: 20200520, end: 20200528
  22. PREDNISONE [Concomitant]
     Active Substance: PREDNISONE
     Indication: Steroid therapy
     Dates: start: 20200528, end: 20200615
  23. KARDEGIC [Concomitant]
     Active Substance: ASPIRIN DL-LYSINE
     Indication: Cardiac disorder
     Dates: start: 201806, end: 20191017
  24. ATOVAQUONE [Concomitant]
     Active Substance: ATOVAQUONE
     Indication: Parasitic infection prophylaxis
     Dates: start: 20200113, end: 20200615
  25. CETIRIZINE HYDROCHLORIDE [Concomitant]
     Active Substance: CETIRIZINE HYDROCHLORIDE
     Indication: Antiallergic therapy
     Dates: start: 20200112, end: 20200122
  26. TARGOCID [Concomitant]
     Active Substance: TEICOPLANIN
     Indication: Antibiotic therapy
     Dates: start: 20191231, end: 20200106

REACTIONS (22)
  - Chronic lymphocytic leukaemia [Not Recovered/Not Resolved]
  - Staphylococcal infection [Recovered/Resolved]
  - Richter^s syndrome [Recovered/Resolved]
  - Febrile bone marrow aplasia [Recovered/Resolved]
  - Neutropenia [Recovered/Resolved]
  - Staphylococcal infection [Recovered/Resolved]
  - Richter^s syndrome [Fatal]
  - Chronic lymphocytic leukaemia [Unknown]
  - Malaise [Recovered/Resolved]
  - Asthenia [Not Recovered/Not Resolved]
  - Pruritus [Recovered/Resolved]
  - Abdominal pain [Recovered/Resolved]
  - Thrombocytopenia [Recovered/Resolved]
  - Hyperuricaemia [Recovered/Resolved]
  - Anaemia [Not Recovered/Not Resolved]
  - Pyrexia [Not Recovered/Not Resolved]
  - Splenomegaly [Not Recovered/Not Resolved]
  - Pruritus [Recovered/Resolved]
  - Erythema [Recovered/Resolved]
  - Thrombocytopenia [Not Recovered/Not Resolved]
  - Vascular device infection [Unknown]
  - Weight decreased [Not Recovered/Not Resolved]

NARRATIVE: CASE EVENT DATE: 20190620
